FAERS Safety Report 20939284 (Version 1)
Quarter: 2022Q2

REPORT INFORMATION
  Report Type: Spontaneous
  Country: DE (occurrence: DE)
  Receive Date: 20220609
  Receipt Date: 20220609
  Transmission Date: 20220721
  Serious: Yes (Other)
  Sender: FDA-Public Use
  Company Number: None

PATIENT
  Age: 33 Year
  Sex: Female
  Weight: 83 kg

DRUGS (2)
  1. RINVOQ [Suspect]
     Active Substance: UPADACITINIB
     Indication: Ankylosing spondylitis
     Dosage: 1X1
     Route: 048
     Dates: start: 20220119
  2. RINVOQ [Suspect]
     Active Substance: UPADACITINIB
     Indication: Iritis

REACTIONS (2)
  - Visual impairment [Unknown]
  - Retinal vascular disorder [Unknown]

NARRATIVE: CASE EVENT DATE: 20220514
